FAERS Safety Report 5941829-8 (Version None)
Quarter: 2008Q4

REPORT INFORMATION
  Report Type: 
  Country: None (occurrence: None)
  Receive Date: 20081031
  Receipt Date: 20081022
  Transmission Date: 20090506
  Serious: Yes (Hospitalization)
  Sender: FDA-Public Use
  Company Number: 2006BI008001

PATIENT
  Age: 63 Year
  Sex: Female
  Weight: 72.5755 kg

DRUGS (4)
  1. AVONEX [Suspect]
     Indication: MULTIPLE SCLEROSIS
     Dosage: 30 UG; QW; IM, 30 UG; QW; IM
     Route: 030
     Dates: start: 19991201
  2. BLOOD PRESSURE MEDICATION [Concomitant]
  3. PROTONIX [Concomitant]
  4. LOVENOX [Concomitant]

REACTIONS (5)
  - COLON CANCER [None]
  - GALLBLADDER DISORDER [None]
  - PROCEDURAL NAUSEA [None]
  - PROCEDURAL PAIN [None]
  - PROCEDURAL VOMITING [None]
